FAERS Safety Report 11112705 (Version 3)
Quarter: 2015Q2

REPORT INFORMATION
  Report Type: Spontaneous
  Country: US (occurrence: US)
  Receive Date: 20150514
  Receipt Date: 20150630
  Transmission Date: 20150821
  Serious: Yes (Other)
  Sender: FDA-Public Use
  Company Number: US-ASTRAZENECA-2014SE68333

PATIENT
  Age: 25216 Day
  Sex: Female
  Weight: 90.3 kg

DRUGS (44)
  1. BYETTA [Suspect]
     Active Substance: EXENATIDE
     Route: 065
     Dates: start: 201103
  2. JANUMET [Suspect]
     Active Substance: METFORMIN HYDROCHLORIDE\SITAGLIPTIN PHOSPHATE
     Route: 065
     Dates: start: 20121026
  3. VICTOZA [Suspect]
     Active Substance: LIRAGLUTIDE
     Dosage: 0.6 MG/0.1 ML (18 MG/3 ML)
     Route: 065
     Dates: start: 20120814
  4. PREMARIN [Concomitant]
     Active Substance: ESTROGENS, CONJUGATED
     Dates: start: 20081031
  5. TRIAMTERENE + HCTZ [Concomitant]
     Dosage: 37.5/25
     Dates: start: 20081202
  6. BYSTOLIC [Concomitant]
     Active Substance: NEBIVOLOL HYDROCHLORIDE
     Dates: start: 20081101
  7. AMBIEN [Concomitant]
     Active Substance: ZOLPIDEM TARTRATE
     Dates: start: 20081101
  8. HYDROXYZINE HCL [Concomitant]
     Active Substance: HYDROXYZINE HYDROCHLORIDE
     Dates: start: 20120723
  9. XANAX [Concomitant]
     Active Substance: ALPRAZOLAM
     Dates: start: 20100607
  10. AMARYL [Concomitant]
     Active Substance: GLIMEPIRIDE
  11. FLUTICASONE PROPIONATE. [Concomitant]
     Active Substance: FLUTICASONE PROPIONATE
  12. COMPLETE MULTIVITAMIN [Concomitant]
     Active Substance: VITAMINS
     Dosage: ONE TABLET DAILY
     Route: 048
     Dates: start: 20150224
  13. XARELTO [Concomitant]
     Active Substance: RIVAROXABAN
     Route: 048
     Dates: start: 20150224
  14. OMEGA [Concomitant]
     Active Substance: CONVALLARIA MAJALIS\CRATAEGUS LAEVIGATA LEAF\PROXYPHYLLINE
  15. ERYTHROMYCIN. [Concomitant]
     Active Substance: ERYTHROMYCIN
  16. FELODIPINE. [Concomitant]
     Active Substance: FELODIPINE
  17. METFORMIN HYDROCHLORIDE. [Concomitant]
     Active Substance: METFORMIN HYDROCHLORIDE
  18. LOTRIMIN [Concomitant]
     Active Substance: CLOTRIMAZOLE
  19. OMEPRAZOLE. [Concomitant]
     Active Substance: OMEPRAZOLE
  20. WELCHOL [Concomitant]
     Active Substance: COLESEVELAM HYDROCHLORIDE
  21. JANUMET [Suspect]
     Active Substance: METFORMIN HYDROCHLORIDE\SITAGLIPTIN PHOSPHATE
     Route: 065
     Dates: start: 20090206, end: 20090502
  22. VICTOZA [Suspect]
     Active Substance: LIRAGLUTIDE
     Dosage: 18MG/3ML INJ INJECT 0.6 ML ONCE DAILY
     Route: 065
     Dates: start: 20110323
  23. ASPIRIN. [Concomitant]
     Active Substance: ASPIRIN
  24. METOPROLOL [Concomitant]
     Active Substance: METOPROLOL
  25. FUROSEMIDE. [Concomitant]
     Active Substance: FUROSEMIDE
  26. LANTUS [Concomitant]
     Active Substance: INSULIN GLARGINE
     Dosage: 100 UNITS/ ML
     Dates: start: 20150224
  27. PROCHLORPERAZINE MALEATE. [Concomitant]
     Active Substance: PROCHLORPERAZINE MALEATE
     Dates: start: 20131011
  28. VICTOZA [Suspect]
     Active Substance: LIRAGLUTIDE
     Route: 065
     Dates: start: 20110110, end: 20121026
  29. VITAMIN B12 [Concomitant]
     Active Substance: CYANOCOBALAMIN
  30. MICARDIS [Concomitant]
     Active Substance: TELMISARTAN
  31. DIGOXIN/ LANOXIN [Concomitant]
     Dates: start: 20081031
  32. FLUOCINOLONE ACETONIDE. [Concomitant]
     Active Substance: FLUOCINOLONE ACETONIDE
  33. BETAMETHASONE [Concomitant]
     Active Substance: BETAMETHASONE
  34. COZAAR [Concomitant]
     Active Substance: LOSARTAN POTASSIUM
  35. VITAMIN D3 [Concomitant]
     Active Substance: CHOLECALCIFEROL
     Dates: start: 20081031
  36. CALCIUM [Concomitant]
     Active Substance: CALCIUM
  37. ZYRTEC [Concomitant]
     Active Substance: CETIRIZINE HYDROCHLORIDE
     Route: 048
     Dates: start: 20070611
  38. BYETTA [Suspect]
     Active Substance: EXENATIDE
     Route: 065
     Dates: start: 20110412, end: 20120512
  39. JANUMET [Suspect]
     Active Substance: METFORMIN HYDROCHLORIDE\SITAGLIPTIN PHOSPHATE
     Dosage: 50-1000 MG TAKE 1 TABLET TWICE DAILY
     Route: 065
     Dates: start: 20090206
  40. LORATADINE. [Concomitant]
     Active Substance: LORATADINE
  41. LOVASTATIN. [Concomitant]
     Active Substance: LOVASTATIN
  42. SONATA [Concomitant]
     Active Substance: ZALEPLON
  43. IRON [Concomitant]
     Active Substance: IRON
     Route: 048
     Dates: start: 20150224
  44. VAGIFEM [Concomitant]
     Active Substance: ESTRADIOL
     Dates: start: 20130926

REACTIONS (6)
  - Pulmonary mass [Unknown]
  - Pancreatitis acute [Unknown]
  - Metastases to liver [Unknown]
  - Pancreatic carcinoma metastatic [Unknown]
  - Metastases to lymph nodes [Unknown]
  - Adrenal adenoma [Unknown]

NARRATIVE: CASE EVENT DATE: 20120918
